FAERS Safety Report 5554839-X (Version None)
Quarter: 2007Q4

REPORT INFORMATION
  Report Type: 
  Country: None (occurrence: None)
  Receive Date: 20071213
  Receipt Date: 20071205
  Transmission Date: 20080405
  Serious: Yes (Hospitalization, Disabling)
  Sender: FDA-Public Use
  Company Number: US-MERCK-96052629

PATIENT
  Age: 52 Year
  Sex: Female
  Weight: 65 kg

DRUGS (21)
  1. PULMICORT [Concomitant]
     Dates: start: 19980701
  2. HUMALOG [Concomitant]
     Route: 065
  3. [THERAPY UNSPECIFIED] [Concomitant]
     Route: 065
  4. FOSAMAX [Suspect]
     Indication: OSTEOPOROSIS POSTMENOPAUSAL
     Route: 048
     Dates: start: 19960523, end: 20001001
  5. FOSAMAX [Suspect]
     Route: 048
     Dates: start: 20001001, end: 20060801
  6. NPH INSULIN [Concomitant]
     Route: 065
  7. PREDNISONE [Concomitant]
     Route: 065
     Dates: end: 19980701
  8. AZMACORT [Concomitant]
     Route: 065
  9. TILADE [Concomitant]
  10. TILADE [Concomitant]
     Route: 065
  11. ROCALTROL [Concomitant]
     Route: 065
  12. ALUPENT [Concomitant]
     Route: 065
  13. BENADRYL [Concomitant]
     Route: 065
  14. CALCIUM CARBONATE [Concomitant]
     Route: 065
  15. XOPENEX [Concomitant]
     Route: 065
  16. WARFARIN [Concomitant]
     Route: 065
  17. INSULIN [Concomitant]
     Route: 065
  18. ALBUTEROL [Concomitant]
  19. ALBUTEROL [Concomitant]
  20. HYDROCHLOROTHIAZIDE [Concomitant]
     Route: 065
  21. CLONIDINE [Concomitant]
     Route: 065

REACTIONS (5)
  - ATRIAL FIBRILLATION [None]
  - COMA [None]
  - HYPOGLYCAEMIA [None]
  - TACHYCARDIA [None]
  - THERAPEUTIC RESPONSE DECREASED [None]
